FAERS Safety Report 10143101 (Version 1)
Quarter: 2014Q2

REPORT INFORMATION
  Report Type: Spontaneous
  Country: US (occurrence: None)
  Receive Date: 20140429
  Receipt Date: 20140429
  Transmission Date: 20141212
  Serious: Yes (Hospitalization)
  Sender: FDA-Public Use
  Company Number: None

PATIENT
  Age: 63 Year
  Sex: Male
  Weight: 66.8 kg

DRUGS (2)
  1. ACETAMINOPHEN/HYDROCODONE [Suspect]
     Indication: PAIN
     Route: 048
     Dates: start: 20131118, end: 20140405
  2. VALPROIC ACID [Suspect]
     Indication: MIGRAINE
     Route: 048
     Dates: start: 20140311

REACTIONS (6)
  - Incorrect dose administered [None]
  - Hallucination [None]
  - Headache [None]
  - Abdominal pain [None]
  - Somnolence [None]
  - Sedation [None]
